FAERS Safety Report 12061652 (Version 1)
Quarter: 2016Q1

REPORT INFORMATION
  Report Type: Spontaneous
  Country: US (occurrence: US)
  Receive Date: 20160210
  Receipt Date: 20160210
  Transmission Date: 20160526
  Serious: No
  Sender: FDA-Public Use
  Company Number: US-ALLERGAN-1504220US

PATIENT
  Sex: Female

DRUGS (2)
  1. BOTOX [Suspect]
     Active Substance: ONABOTULINUMTOXINA
     Dosage: 900 UNITS, SINGLE, EVERY 3-5 MONTHS
     Route: 030
     Dates: start: 201502, end: 201502
  2. BOTOX [Suspect]
     Active Substance: ONABOTULINUMTOXINA
     Indication: HEMIPARESIS
     Dosage: 900 UNITS, SINGLE, EVERY 3-5 MONTHS
     Route: 030
     Dates: start: 201411, end: 201411

REACTIONS (4)
  - Injection site pain [Recovered/Resolved]
  - Overdose [Unknown]
  - Muscular weakness [Not Recovered/Not Resolved]
  - Asthenia [Not Recovered/Not Resolved]
